FAERS Safety Report 9097901 (Version 1)
Quarter: 2013Q1

REPORT INFORMATION
  Report Type: Spontaneous
  Country: US (occurrence: US)
  Receive Date: 20130212
  Receipt Date: 20130212
  Transmission Date: 20140127
  Serious: No
  Sender: FDA-Public Use
  Company Number: US-TEVA-332829USA

PATIENT
  Sex: Male

DRUGS (1)
  1. SALBUTAMOL [Suspect]

REACTIONS (2)
  - Drug ineffective [Unknown]
  - Asthma [Unknown]
